FAERS Safety Report 7675134-9 (Version None)
Quarter: 2011Q3

REPORT INFORMATION
  Report Type: 
  Country: None (occurrence: None)
  Receive Date: 20110810
  Receipt Date: 20110727
  Transmission Date: 20111222
  Serious: Yes (Hospitalization)
  Sender: FDA-Public Use
  Company Number: FR-MERCK-1108USA00632

PATIENT
  Age: 23 Year
  Sex: Male

DRUGS (5)
  1. NEORAL [Suspect]
     Route: 048
     Dates: start: 20100813
  2. ISRADIPINE [Suspect]
     Route: 048
     Dates: end: 20110601
  3. TRAMADOL HCL [Suspect]
     Route: 065
  4. COZAAR [Suspect]
     Indication: HYPERTENSION
     Route: 048
     Dates: start: 20100813, end: 20110601
  5. CELLCEPT [Suspect]
     Route: 048
     Dates: start: 20100813, end: 20110531

REACTIONS (1)
  - AGRANULOCYTOSIS [None]
